FAERS Safety Report 9428244 (Version 3)
Quarter: 2013Q3

REPORT INFORMATION
  Report Type: Spontaneous
  Country: US (occurrence: US)
  Receive Date: 20130730
  Receipt Date: 20130821
  Transmission Date: 20140515
  Serious: Yes (Other)
  Sender: FDA-Public Use
  Company Number: US-BAYER-2013-090046

PATIENT
  Age: 30 Year
  Sex: Female
  Weight: 92.52 kg

DRUGS (1)
  1. MIRENA [Suspect]
     Indication: CONTRACEPTION
     Dosage: 20 MCG/24HR, CONT
     Route: 015
     Dates: start: 20081016, end: 20130718

REACTIONS (3)
  - Ectopic pregnancy [Recovered/Resolved]
  - Pain [Recovered/Resolved]
  - Drug ineffective [None]
